FAERS Safety Report 5194556-1 (Version None)
Quarter: 2006Q4

REPORT INFORMATION
  Report Type: 
  Country: None (occurrence: None)
  Receive Date: 20061221
  Receipt Date: 20061206
  Transmission Date: 20070319
  Serious: Yes (Life-Threatening, Disabling)
  Sender: FDA-Public Use
  Company Number: 2006-325

PATIENT
  Age: 45 Year
  Sex: Male

DRUGS (3)
  1. CITALOPRAM HYDROBROMIDE [Suspect]
  2. BRUFEN [Suspect]
  3. CLARITHROMYCIN [Concomitant]

REACTIONS (2)
  - CIRCULATORY COLLAPSE [None]
  - TRANSFUSION [None]
